FAERS Safety Report 11400085 (Version 1)
Quarter: 2015Q3

REPORT INFORMATION
  Report Type: Spontaneous
  Country: US (occurrence: US)
  Receive Date: 20150820
  Receipt Date: 20150820
  Transmission Date: 20151125
  Serious: No
  Sender: FDA-Public Use
  Company Number: US-SUPERNUS PHARMACEUTICALS, INC.-2015SUP00049

PATIENT
  Age: 55 Year
  Sex: Female
  Weight: 72.34 kg

DRUGS (9)
  1. FISH OIL [Concomitant]
     Active Substance: FISH OIL
  2. ESTROGEL [Concomitant]
     Active Substance: ESTRADIOL
  3. PROGESTERONE. [Concomitant]
     Active Substance: PROGESTERONE
  4. MULTIVITAMIN (UNSPECIFIED) [Concomitant]
  5. NAPROSYN [Concomitant]
     Active Substance: NAPROXEN
     Dosage: 500 MG, 1X/DAY
  6. ARMOUR THYROID [Concomitant]
     Active Substance: THYROID, PORCINE\THYROID, UNSPECIFIED
     Dosage: 0.05 UNK, UNK
  7. FLAXSEED [Concomitant]
     Active Substance: FLAX SEED
  8. TROKENDI XR [Suspect]
     Active Substance: TOPIRAMATE
     Indication: MIGRAINE
     Dosage: 25 MG, 1X/DAY
     Route: 048
     Dates: start: 201412, end: 201501
  9. TROKENDI XR [Suspect]
     Active Substance: TOPIRAMATE
     Dosage: 50 MG, 1X/DAY
     Route: 048
     Dates: start: 201501

REACTIONS (4)
  - Off label use [Not Recovered/Not Resolved]
  - Tenosynovitis [Unknown]
  - Ligament rupture [Not Recovered/Not Resolved]
  - Bursitis [Unknown]

NARRATIVE: CASE EVENT DATE: 201412
